FAERS Safety Report 7024833-0 (Version None)
Quarter: 2010Q4

REPORT INFORMATION
  Report Type: 
  Country: None (occurrence: None)
  Receive Date: 20101001
  Receipt Date: 20100927
  Transmission Date: 20110411
  Serious: Yes (Life-Threatening, Hospitalization)
  Sender: FDA-Public Use
  Company Number: GB-PFIZER INC-2010078108

PATIENT
  Age: 56 Year
  Sex: Male

DRUGS (8)
  1. ATORVASTATIN CALCIUM [Suspect]
     Dosage: 20 MG, UNK
  2. PERINDOPRIL [Suspect]
     Dosage: 4 MG, UNK
  3. INDAPAMIDE [Suspect]
     Dosage: 2.5 MG, UNK
  4. RANITIDINE [Suspect]
     Dosage: 150 MG, 2X/DAY
  5. EZETIMIBE [Suspect]
     Dosage: 10 MG, UNK
     Route: 048
  6. ACETYLSALICYLIC ACID [Concomitant]
     Dosage: 75 MG, UNK
     Route: 048
  7. GLUCOSAMINE [Concomitant]
     Dosage: 100 MG, UNK
     Route: 048
  8. NITROGLYCERIN [Concomitant]
     Dosage: 2 DF, UNK
     Route: 060

REACTIONS (2)
  - HYPOTENSION [None]
  - STEVENS-JOHNSON SYNDROME [None]
